FAERS Safety Report 7370343-0 (Version None)
Quarter: 2011Q1

REPORT INFORMATION
  Report Type: 
  Country: None (occurrence: None)
  Receive Date: 20110323
  Receipt Date: 20110317
  Transmission Date: 20110831
  Serious: Yes (Hospitalization, Disabling, Other)
  Sender: FDA-Public Use
  Company Number: AT-PFIZER INC-2011044172

PATIENT
  Age: 54 Year
  Sex: Female
  Weight: 58 kg

DRUGS (9)
  1. THYREX [Concomitant]
     Dosage: 0.16 MG, 1X/DAY
     Route: 048
     Dates: start: 19900101
  2. DILATREND [Concomitant]
     Dosage: 6.25 MG, 1X/DAY
     Route: 048
     Dates: start: 20020401
  3. XANOR [Concomitant]
     Dosage: 0.25 MG, AS NEEDED
     Route: 048
  4. NEODOLPASSE [Concomitant]
     Indication: BACK PAIN
  5. BLOPRESS [Concomitant]
     Dosage: UNK
     Route: 048
     Dates: start: 20020401
  6. TRESLEEN [Suspect]
     Indication: ANXIETY DISORDER
     Dosage: 50 MG, 1X/DAY
     Route: 048
     Dates: start: 20011201, end: 20110301
  7. MEFENAMIC ACID [Concomitant]
     Dosage: UNK
     Route: 048
  8. PANTOPRAZOLE [Concomitant]
     Dosage: 40 MG, 1X/DAY
     Route: 048
  9. TRESLEEN [Suspect]
     Indication: PANIC ATTACK

REACTIONS (7)
  - SKIN FISSURES [None]
  - MASTICATION DISORDER [None]
  - ORAL DISCOMFORT [None]
  - GLOSSODYNIA [None]
  - ORAL PAIN [None]
  - LEUKOPLAKIA ORAL [None]
  - TONGUE NEOPLASM BENIGN [None]
